FAERS Safety Report 12692567 (Version 2)
Quarter: 2016Q3

REPORT INFORMATION
  Report Type: Spontaneous
  Country: GB (occurrence: GB)
  Receive Date: 20160829
  Receipt Date: 20160919
  Transmission Date: 20161109
  Serious: Yes (Other)
  Sender: FDA-Public Use
  Company Number: GB-ORION CORPORATION ORION PHARMA-TREX2016-0483

PATIENT
  Age: 49 Year
  Sex: Male
  Weight: 83 kg

DRUGS (13)
  1. CETRABEN EMOLLIENT CREAM [Concomitant]
     Indication: DRY SKIN
     Route: 065
     Dates: start: 20160428, end: 20160429
  2. MOMETASONE [Concomitant]
     Active Substance: MOMETASONE
     Route: 065
     Dates: start: 20160517
  3. FOLIC ACID. [Concomitant]
     Active Substance: FOLIC ACID
     Route: 065
     Dates: start: 20150521
  4. MELOXICAM. [Concomitant]
     Active Substance: MELOXICAM
     Route: 065
     Dates: start: 20150521
  5. METHOTREXATE (TRADE NAME UNKNOWN) [Suspect]
     Active Substance: METHOTREXATE
     Indication: RHEUMATOID ARTHRITIS
     Dosage: INCREASE AS DIRECTED TO SEVEN TO BE TAKEN ONCE
     Route: 065
     Dates: start: 20150521, end: 20160414
  6. CANDESARTAN CILEXETIL. [Interacting]
     Active Substance: CANDESARTAN CILEXETIL
     Route: 048
     Dates: start: 20160301, end: 20160327
  7. LANSOPRAZOLE. [Concomitant]
     Active Substance: LANSOPRAZOLE
     Route: 065
     Dates: start: 20150708
  8. PREDNISOLONE. [Concomitant]
     Active Substance: PREDNISOLONE
     Dosage: THREE TIMES DAILY FOR TWO WEEKS THEN REDUCED BY 2.5 MG PER FORTHNIGHT
     Route: 065
     Dates: start: 20160608, end: 20160609
  9. ZAPAIN [Concomitant]
     Active Substance: ACETAMINOPHEN\CODEINE PHOSPHATE
     Dosage: FOUR TO SIX HOURLY WHEN REQUIRED
     Route: 065
     Dates: start: 20160428, end: 20160429
  10. CANDESARTAN CILEXETIL. [Interacting]
     Active Substance: CANDESARTAN CILEXETIL
     Route: 048
     Dates: start: 20160328, end: 201604
  11. CETRABEN EMOLLIENT CREAM [Concomitant]
     Indication: PRURITUS
  12. AMLODIPINE [Concomitant]
     Active Substance: AMLODIPINE BESYLATE
     Route: 065
     Dates: start: 20160107
  13. SULFASALAZINE. [Concomitant]
     Active Substance: SULFASALAZINE
     Route: 065
     Dates: start: 20150521

REACTIONS (3)
  - Hepatotoxicity [Recovered/Resolved]
  - Drug interaction [Unknown]
  - Alanine aminotransferase increased [Recovered/Resolved]

NARRATIVE: CASE EVENT DATE: 2016
